FAERS Safety Report 18705385 (Version 1)
Quarter: 2021Q1

REPORT INFORMATION
  Report Type: Spontaneous
  Country: US (occurrence: US)
  Receive Date: 20210106
  Receipt Date: 20210106
  Transmission Date: 20210419
  Serious: Yes (Death, Hospitalization)
  Sender: FDA-Public Use
  Company Number: US-BAUSCH-BL-2020-039377

PATIENT
  Age: 24 Year
  Sex: Male

DRUGS (4)
  1. METOCLOPRAMIDE. [Suspect]
     Active Substance: METOCLOPRAMIDE
     Indication: PRODUCT USED FOR UNKNOWN INDICATION
     Dosage: INGESTION
     Route: 048
  2. SODIUM NITRITE [Suspect]
     Active Substance: SODIUM NITRITE
     Route: 065
  3. SODIUM NITRITE [Suspect]
     Active Substance: SODIUM NITRITE
     Indication: PRODUCT USED FOR UNKNOWN INDICATION
     Dosage: INGESTION
     Route: 048
  4. METOCLOPRAMIDE. [Suspect]
     Active Substance: METOCLOPRAMIDE
     Route: 065

REACTIONS (3)
  - Cardiac arrest [Unknown]
  - Respiratory arrest [Unknown]
  - Completed suicide [Fatal]
